FAERS Safety Report 23261046 (Version 2)
Quarter: 2024Q1

REPORT INFORMATION
  Report Type: Spontaneous
  Country: JP (occurrence: JP)
  Receive Date: 20231205
  Receipt Date: 20240104
  Transmission Date: 20240410
  Serious: Yes (Hospitalization, Other)
  Sender: FDA-Public Use
  Company Number: JP-COSETTE-CP2023JP000219

PATIENT
  Age: 72 Year
  Sex: Female

DRUGS (2)
  1. EFFIENT [Suspect]
     Active Substance: PRASUGREL HYDROCHLORIDE
     Indication: Intracranial aneurysm
     Route: 048
  2. ASPIRIN [Concomitant]
     Active Substance: ASPIRIN
     Indication: Carotid artery aneurysm
     Route: 065

REACTIONS (3)
  - Brain stem haemorrhage [Unknown]
  - Aneurysm [Recovering/Resolving]
  - Off label use [Unknown]
